FAERS Safety Report 9784747 (Version 1)
Quarter: 2013Q4

REPORT INFORMATION
  Report Type: Spontaneous
  Country: CA (occurrence: CA)
  Receive Date: 20131227
  Receipt Date: 20131227
  Transmission Date: 20140711
  Serious: Yes (Disabling)
  Sender: FDA-Public Use
  Company Number: CA-ALVOGEN-2013AL002891

PATIENT
  Age: 30 Year
  Sex: Female

DRUGS (4)
  1. MACROBID [Suspect]
     Indication: URINARY TRACT INFECTION
     Dates: start: 201205
  2. MACROBID [Suspect]
     Indication: URINARY TRACT INFECTION
     Dates: end: 201308
  3. MACROBID [Suspect]
     Indication: URINARY TRACT INFECTION
     Dates: start: 20131211, end: 201312
  4. CORTISONE [Concomitant]
     Indication: VULVOVAGINAL BURNING SENSATION

REACTIONS (4)
  - Fibromyalgia [Recovered/Resolved with Sequelae]
  - Vulvovaginal pain [Recovered/Resolved with Sequelae]
  - Nerve injury [Recovered/Resolved with Sequelae]
  - Asthma [Recovered/Resolved with Sequelae]
